FAERS Safety Report 8437475-7 (Version None)
Quarter: 2012Q2

REPORT INFORMATION
  Report Type: 
  Country: None (occurrence: None)
  Receive Date: 20120614
  Receipt Date: 20120403
  Transmission Date: 20120825
  Serious: No
  Sender: FDA-Public Use
  Company Number: US-AMGEN-USASP2011067122

PATIENT
  Age: 73 Year
  Sex: Female

DRUGS (6)
  1. SIMVASTATIN [Concomitant]
     Dosage: UNK
  2. METOPROLOL TARTRATE [Concomitant]
     Dosage: UNK
  3. NISOLDIPINE [Concomitant]
     Dosage: UNK
  4. PROLIA [Suspect]
     Indication: OSTEOPOROSIS POSTMENOPAUSAL
     Dosage: 60 MG, Q6MO
     Dates: start: 20110601
  5. BENICAR HCT [Concomitant]
     Dosage: UNK
  6. PRILOSEC [Concomitant]
     Dosage: UNK

REACTIONS (6)
  - BLOOD URINE PRESENT [None]
  - DERMATITIS [None]
  - BACTERIAL INFECTION [None]
  - BLISTER [None]
  - NECK PAIN [None]
  - TINEA PEDIS [None]
